FAERS Safety Report 11599615 (Version 1)
Quarter: 2015Q4

REPORT INFORMATION
  Report Type: Spontaneous
  Country: JP (occurrence: JP)
  Receive Date: 20151006
  Receipt Date: 20151006
  Transmission Date: 20160304
  Serious: Yes (Death)
  Sender: FDA-Public Use
  Company Number: JP-009507513-1507JPN010073

PATIENT
  Age: 87 Year
  Sex: Male

DRUGS (7)
  1. HEPARIN SODIUM. [Concomitant]
     Active Substance: HEPARIN SODIUM
     Indication: EMBOLIC CEREBRAL INFARCTION
     Dosage: 10,000 UNITS WERE DISSOLVED IN 40 ML NORMAL SALINE. 3 ML WAS CONTINOUSLY DRIPPED IN ONE HOUR
     Route: 041
     Dates: start: 20150622
  2. VANCOMYCIN [Concomitant]
     Active Substance: VANCOMYCIN
     Indication: ENDOCARDITIS
     Dosage: DAILY DOSAGE UNKNOWN
     Route: 065
  3. CUBICIN [Suspect]
     Active Substance: DAPTOMYCIN
     Indication: ENDOCARDITIS
     Dosage: 6 MG/KG, QOD
     Route: 041
     Dates: start: 20150713, end: 20150826
  4. SOLYUGEN F [Concomitant]
     Dosage: 500 ML, UNK
     Route: 065
     Dates: start: 201506
  5. HEPARIN SODIUM. [Concomitant]
     Active Substance: HEPARIN SODIUM
     Indication: ATRIAL FIBRILLATION
  6. CUBICIN [Suspect]
     Active Substance: DAPTOMYCIN
     Indication: SEPSIS
     Dosage: 8 MG/KG, QOD
     Route: 041
     Dates: start: 20150827, end: 20150915
  7. SOLDEM 3A [Concomitant]
     Active Substance: CARBOHYDRATES\POTASSIUM CHLORIDE\SODIUM CHLORIDE\SODIUM LACTATE
     Dosage: 500 ML, BID
     Route: 065
     Dates: start: 201506

REACTIONS (6)
  - Platelet count decreased [Not Recovered/Not Resolved]
  - Endocarditis [Fatal]
  - Rash [Unknown]
  - Fungal infection [Unknown]
  - Urinary tract infection [Unknown]
  - Drug effect incomplete [Unknown]

NARRATIVE: CASE EVENT DATE: 2015
